FAERS Safety Report 23982920 (Version 2)
Quarter: 2024Q2

REPORT INFORMATION
  Report Type: Report from Study
  Country: US (occurrence: US)
  Receive Date: 20240617
  Receipt Date: 20240625
  Transmission Date: 20240716
  Serious: Yes (Hospitalization)
  Sender: FDA-Public Use
  Company Number: US-ABBVIE-5804243

PATIENT
  Sex: Male

DRUGS (3)
  1. DUOPA [Suspect]
     Active Substance: CARBIDOPA\LEVODOPA
     Indication: Parkinson^s disease
     Dosage: DUOPA (100ML INTO 7) 4.63-20MG/ MD:11ML, CD: 3.1ML PER HOUR, ED: 1 ML,?1 CASSETTE VIA PEG-J FOR U...
     Route: 050
     Dates: start: 20230818
  2. DUOPA [Suspect]
     Active Substance: CARBIDOPA\LEVODOPA
     Indication: Product used for unknown indication
  3. DUOPA [Suspect]
     Active Substance: CARBIDOPA\LEVODOPA
     Indication: Dyskinesia

REACTIONS (3)
  - Mental status changes [Recovering/Resolving]
  - Dehydration [Unknown]
  - Hallucination [Recovering/Resolving]
